FAERS Safety Report 6496505-2 (Version None)
Quarter: 2009Q4

REPORT INFORMATION
  Report Type: 
  Country: None (occurrence: None)
  Receive Date: 20091210
  Receipt Date: 20091127
  Transmission Date: 20100525
  Serious: Yes (Hospitalization)
  Sender: FDA-Public Use
  Company Number: ADR52572009

PATIENT
  Age: 85 Year
  Sex: Female

DRUGS (7)
  1. RAMIPRIL [Suspect]
     Indication: HYPERTENSION
     Dosage: 5 MG MILLIGRAM(S), 1 IN DAY ORAL
     Route: 048
     Dates: start: 20070801
  2. SULPIRIDE [Concomitant]
  3. ACETYLSALICYLIC ACID SRT [Concomitant]
  4. ACTRAPID HUMAN [Concomitant]
  5. DIGITOXIN INJ [Concomitant]
  6. LANTUS [Concomitant]
  7. NITRENDIPINE [Concomitant]

REACTIONS (1)
  - FAECALOMA [None]
